FAERS Safety Report 10853075 (Version 1)
Quarter: 2015Q1

REPORT INFORMATION
  Report Type: Spontaneous
  Country: US (occurrence: None)
  Receive Date: 20150218
  Receipt Date: 20150218
  Transmission Date: 20150721
  Serious: No
  Sender: FDA-Public Use
  Company Number: None

PATIENT
  Age: 80 Year
  Sex: Male
  Weight: 71.03 kg

DRUGS (1)
  1. ENOXAPARIN [Suspect]
     Active Substance: ENOXAPARIN
     Indication: ATRIAL FIBRILLATION
     Dates: start: 20141221, end: 20141229

REACTIONS (6)
  - Haemoglobin decreased [None]
  - Dyspnoea [None]
  - Pulmonary alveolar haemorrhage [None]
  - Condition aggravated [None]
  - Hypotension [None]
  - Haemoptysis [None]

NARRATIVE: CASE EVENT DATE: 20141228
